FAERS Safety Report 5316685-1 (Version None)
Quarter: 2007Q2

REPORT INFORMATION
  Report Type: 
  Country: None (occurrence: None)
  Receive Date: 20070504
  Receipt Date: 20070425
  Transmission Date: 20071010
  Serious: Yes (Hospitalization, Other)
  Sender: FDA-Public Use
  Company Number: DEWYE894206MAR07

PATIENT
  Sex: Male
  Weight: 78.5 kg

DRUGS (1)
  1. VENLAFAXINE HCL [Suspect]
     Indication: DEPRESSION
     Dosage: 225 MG PER DAY
     Route: 048
     Dates: start: 20060101

REACTIONS (2)
  - HEPATIC ENZYME INCREASED [None]
  - NONSPECIFIC REACTION [None]
